FAERS Safety Report 23759772 (Version 1)
Quarter: 2024Q2

REPORT INFORMATION
  Report Type: Report from Study
  Country: CA (occurrence: CA)
  Receive Date: 20240419
  Receipt Date: 20240419
  Transmission Date: 20240716
  Serious: Yes (Hospitalization, Other)
  Sender: FDA-Public Use
  Company Number: CA-ABBVIE-5721794

PATIENT
  Sex: Male

DRUGS (1)
  1. LUPRON DEPOT [Suspect]
     Active Substance: LEUPROLIDE ACETATE
     Indication: Prostate cancer
     Route: 030
     Dates: start: 20200612

REACTIONS (3)
  - Septic shock [Recovering/Resolving]
  - Metastases to liver [Recovering/Resolving]
  - Unevaluable event [Recovering/Resolving]

NARRATIVE: CASE EVENT DATE: 20240101
